FAERS Safety Report 7406732-5 (Version None)
Quarter: 2011Q2

REPORT INFORMATION
  Report Type: 
  Country: None (occurrence: None)
  Receive Date: 20110406
  Receipt Date: 20110406
  Transmission Date: 20111010
  Serious: Yes (Death, Hospitalization)
  Sender: FDA-Public Use
  Company Number: None

PATIENT
  Sex: Male
  Weight: 101.6 kg

DRUGS (2)
  1. CISPLATIN [Suspect]
     Dosage: 120 MG
     Dates: end: 20110105
  2. DOCETAXEL [Suspect]
     Dosage: 120 MG
     Dates: end: 20110105

REACTIONS (13)
  - GASTROINTESTINAL HAEMORRHAGE [None]
  - SOMNOLENCE [None]
  - PRODUCTIVE COUGH [None]
  - HYPOTENSION [None]
  - HAEMATURIA [None]
  - OBSTRUCTIVE AIRWAYS DISORDER [None]
  - MALAISE [None]
  - ASPIRATION [None]
  - RESPIRATORY FAILURE [None]
  - CEREBRAL ISCHAEMIA [None]
  - LARYNGEAL OEDEMA [None]
  - OEDEMA [None]
  - GENITOURINARY TRACT INFECTION [None]
